FAERS Safety Report 11629101 (Version 1)
Quarter: 2015Q4

REPORT INFORMATION
  Report Type: Spontaneous
  Country: BR (occurrence: BR)
  Receive Date: 20151014
  Receipt Date: 20151014
  Transmission Date: 20160304
  Serious: Yes (Hospitalization, Other)
  Sender: FDA-Public Use
  Company Number: BR-PFIZER INC-2015330534

PATIENT
  Sex: Female

DRUGS (4)
  1. CELEBRA [Suspect]
     Active Substance: CELECOXIB
     Indication: OSTEOARTHRITIS
     Dosage: 200 MG, EVERY 8 HOURS
     Route: 048
     Dates: start: 201505, end: 201505
  2. TYLEX [Suspect]
     Active Substance: ACETAMINOPHEN\CODEINE PHOSPHATE
     Dosage: UNK
     Dates: start: 201505
  3. KETOROLAC [Suspect]
     Active Substance: KETOROLAC\KETOROLAC TROMETHAMINE
     Dosage: UNK
     Dates: start: 201506
  4. FELDENE [Suspect]
     Active Substance: PIROXICAM
     Dosage: UNK
     Dates: start: 201506

REACTIONS (5)
  - Malnutrition [Unknown]
  - Jaundice [Unknown]
  - Asthenia [Unknown]
  - Nausea [Recovered/Resolved]
  - Drug-induced liver injury [Unknown]

NARRATIVE: CASE EVENT DATE: 2015
